FAERS Safety Report 10811563 (Version 1)
Quarter: 2015Q1

REPORT INFORMATION
  Report Type: Spontaneous
  Country: US (occurrence: None)
  Receive Date: 20150212
  Receipt Date: 20150212
  Transmission Date: 20150721
  Serious: No
  Sender: FDA-Public Use
  Company Number: None

PATIENT
  Age: 55 Year
  Sex: Female
  Weight: 66.68 kg

DRUGS (1)
  1. LINZESS [Suspect]
     Active Substance: LINACLOTIDE
     Indication: CONSTIPATION
     Dosage: 1 PILL DAY 30 MIN. BEFORE MEAL, ONCE DAILY, TAKEN BY MOUTH
     Route: 048

REACTIONS (5)
  - Back pain [None]
  - Faecal incontinence [None]
  - Dysstasia [None]
  - Discomfort [None]
  - Abdominal distension [None]

NARRATIVE: CASE EVENT DATE: 20150115
